FAERS Safety Report 9060549 (Version 4)
Quarter: 2015Q4

REPORT INFORMATION
  Report Type: Spontaneous
  Country: US (occurrence: US)
  Receive Date: 20130212
  Receipt Date: 20151105
  Transmission Date: 20160305
  Serious: Yes (Hospitalization, Other)
  Sender: FDA-Public Use
  Company Number: US-009507513-1302USA004233

PATIENT
  Sex: Male
  Weight: 108.7 kg

DRUGS (1)
  1. PROPECIA [Suspect]
     Active Substance: FINASTERIDE
     Indication: ALOPECIA
     Dosage: 1 MG, QD
     Route: 048
     Dates: start: 1999, end: 200911

REACTIONS (21)
  - Sleep disorder [Unknown]
  - Fungal infection [Unknown]
  - Hypothyroidism [Recovering/Resolving]
  - Insulin resistance syndrome [Unknown]
  - Muscle atrophy [Unknown]
  - Hypercholesterolaemia [Unknown]
  - Libido decreased [Unknown]
  - Cognitive disorder [Not Recovered/Not Resolved]
  - Blood testosterone decreased [Not Recovered/Not Resolved]
  - Hypogonadism male [Unknown]
  - Nasal septal operation [Unknown]
  - Vitamin D deficiency [Unknown]
  - Sexual dysfunction [Not Recovered/Not Resolved]
  - Renal failure [Unknown]
  - Diarrhoea [Not Recovered/Not Resolved]
  - Tooth extraction [Unknown]
  - Rash vesicular [Unknown]
  - Poor quality sleep [Unknown]
  - Fatigue [Unknown]
  - Nasal septum deviation [Unknown]
  - Erectile dysfunction [Unknown]

NARRATIVE: CASE EVENT DATE: 2000
